FAERS Safety Report 9713821 (Version 2)
Quarter: 2014Q1

REPORT INFORMATION
  Report Type: Report from Study
  Country: US (occurrence: US)
  Receive Date: 20131126
  Receipt Date: 20140319
  Transmission Date: 20141002
  Serious: Yes (Other)
  Sender: FDA-Public Use
  Company Number: US-ABBVIE-13P-163-1172111-00

PATIENT
  Sex: Female
  Weight: 69.01 kg

DRUGS (5)
  1. CREON [Suspect]
     Indication: PANCREATIC INSUFFICIENCY
     Dosage: UNKNOWN
     Dates: start: 201202
  2. AZANTHIOPINE [Concomitant]
     Indication: PRODUCT USED FOR UNKNOWN INDICATION
  3. FERGON [Concomitant]
     Indication: PRODUCT USED FOR UNKNOWN INDICATION
  4. FOLIC ACID [Concomitant]
     Indication: PRODUCT USED FOR UNKNOWN INDICATION
  5. MEGACE [Concomitant]
     Indication: PRODUCT USED FOR UNKNOWN INDICATION

REACTIONS (3)
  - Duodenal neoplasm [Not Recovered/Not Resolved]
  - Thyroid neoplasm [Not Recovered/Not Resolved]
  - Blood urine present [Not Recovered/Not Resolved]
